FAERS Safety Report 16669359 (Version 1)
Quarter: 2019Q3

REPORT INFORMATION
  Report Type: Spontaneous
  Country: CN (occurrence: CN)
  Receive Date: 20190805
  Receipt Date: 20190805
  Transmission Date: 20191004
  Serious: Yes (Life-Threatening)
  Sender: FDA-Public Use
  Company Number: CN-GLAXOSMITHKLINE-CN2019APC140514

PATIENT

DRUGS (3)
  1. ZINACEF [Suspect]
     Active Substance: CEFUROXIME SODIUM
     Indication: CRANIOCEREBRAL INJURY
     Dosage: 1.5 G, BID
     Route: 042
     Dates: start: 20190715, end: 20190720
  2. SODIUM CHLORIDE. [Concomitant]
     Active Substance: SODIUM CHLORIDE
     Indication: VEHICLE SOLUTION USE
     Dosage: 100 ML, BID
     Route: 042
     Dates: start: 20190715, end: 20190720
  3. ZINACEF [Suspect]
     Active Substance: CEFUROXIME SODIUM
     Indication: INFECTION

REACTIONS (4)
  - Rash generalised [Recovered/Resolved]
  - Pruritus [Recovered/Resolved]
  - Dyspnoea [Recovered/Resolved]
  - Blood pressure increased [Recovered/Resolved]

NARRATIVE: CASE EVENT DATE: 20190720
